FAERS Safety Report 5424390-6 (Version None)
Quarter: 2007Q3

REPORT INFORMATION
  Report Type: 
  Country: None (occurrence: None)
  Receive Date: 20070822
  Receipt Date: 20070807
  Transmission Date: 20080115
  Serious: Yes (Hospitalization)
  Sender: FDA-Public Use
  Company Number: 2007RR-09232

PATIENT
  Sex: Male

DRUGS (5)
  1. SIMVASTATIN [Suspect]
     Indication: HYPERCHOLESTEROLAEMIA
     Dosage: 40 MG, ORAL
     Route: 048
     Dates: start: 20041027
  2. BISOPROLOL (BISPROLOL) [Concomitant]
  3. CLOPIDOGREL BISULPHATE (CLOPIDOGREL) [Concomitant]
  4. LANSOPRAZOLE [Concomitant]
  5. RAMIPRIL [Concomitant]

REACTIONS (4)
  - CARPAL TUNNEL SYNDROME [None]
  - HIATUS HERNIA [None]
  - MUSCULOSKELETAL PAIN [None]
  - SYNCOPE VASOVAGAL [None]
